FAERS Safety Report 18438934 (Version 1)
Quarter: 2020Q4

REPORT INFORMATION
  Report Type: Spontaneous
  Country: US (occurrence: US)
  Receive Date: 20201028
  Receipt Date: 20201028
  Transmission Date: 20210114
  Serious: Yes (Death, Disabling, Other)
  Sender: FDA-Public Use
  Company Number: US-PURDUE-USA-2020-0172699

PATIENT
  Sex: Male

DRUGS (2)
  1. OXYCONTIN [Suspect]
     Active Substance: OXYCODONE HYDROCHLORIDE
     Indication: PAIN MANAGEMENT
     Dosage: 20 MG, UNK
     Route: 048
     Dates: start: 2000, end: 2018
  2. OXYCONTIN [Suspect]
     Active Substance: OXYCODONE HYDROCHLORIDE
     Dosage: 80 MG, BID
     Route: 048
     Dates: start: 2000, end: 2018

REACTIONS (9)
  - Asthenia [Unknown]
  - Drug dependence [Unknown]
  - Disability [Unknown]
  - Pain [Unknown]
  - Cerebrovascular accident [Unknown]
  - Nephropathy [Unknown]
  - General physical health deterioration [Unknown]
  - Renal failure [Fatal]
  - Drug tolerance [Unknown]

NARRATIVE: CASE EVENT DATE: 2015
